FAERS Safety Report 14556706 (Version 1)
Quarter: 2018Q1

REPORT INFORMATION
  Report Type: Spontaneous
  Country: US (occurrence: US)
  Receive Date: 20180221
  Receipt Date: 20180221
  Transmission Date: 20180509
  Serious: No
  Sender: FDA-Public Use
  Company Number: US-PFIZER INC-2018003508

PATIENT
  Age: 27 Year
  Sex: Female

DRUGS (1)
  1. ELELYSO [Suspect]
     Active Substance: TALIGLUCERASE ALFA
     Dosage: UNK(EVERY 10 DAY INFUSIONS)

REACTIONS (3)
  - Product use issue [Unknown]
  - Inflammation [Unknown]
  - Drug hypersensitivity [Unknown]
